FAERS Safety Report 4458072-4 (Version None)
Quarter: 2004Q3

REPORT INFORMATION
  Report Type: 
  Country: None (occurrence: None)
  Receive Date: 20040922
  Receipt Date: 20040903
  Transmission Date: 20050211
  Serious: Yes (Death)
  Sender: FDA-Public Use
  Company Number: A02200402666

PATIENT
  Age: 62 Year
  Sex: Male

DRUGS (3)
  1. STILNOX         (ZOLPIDEM) [Suspect]
     Indication: SUICIDE ATTEMPT
     Dosage: 4 BOXES OF 14 TABLETS FOUND EMPTY
     Route: 048
     Dates: start: 20040101, end: 20040101
  2. MEPRONIZINE - (MEPROBAMATE/ACEPROMETAZINE) - TABLET - 410 MG [Suspect]
     Indication: SUICIDE ATTEMPT
     Dosage: 1 BOX 0F 30 TABLETS FOUND EMPTY
     Route: 048
     Dates: start: 20040101, end: 20040101
  3. PAROXETINE HCL [Suspect]
     Indication: DEPRESSION
     Dosage: 20 MG OD
     Route: 048
     Dates: end: 20040101

REACTIONS (2)
  - ILL-DEFINED DISORDER [None]
  - MULTIPLE DRUG OVERDOSE INTENTIONAL [None]
